FAERS Safety Report 8050031-8 (Version None)
Quarter: 2012Q1

REPORT INFORMATION
  Report Type: 
  Country: None (occurrence: None)
  Receive Date: 20120117
  Receipt Date: 20120110
  Transmission Date: 20120608
  Serious: Yes (Other)
  Sender: FDA-Public Use
  Company Number: US-JNJFOC-20111011679

PATIENT
  Sex: Female
  Weight: 142.43 kg

DRUGS (17)
  1. LOMOTIL [Concomitant]
     Indication: DIARRHOEA
     Dosage: 2 AS NEEDED UP TO 8/DAY
     Route: 048
     Dates: start: 20100420
  2. GEMFIBROZIL [Concomitant]
     Indication: DYSLIPIDAEMIA
     Route: 048
     Dates: start: 20111005
  3. MIRTAZAPINE [Concomitant]
     Route: 048
  4. METOPROLOL SUCCINATE EXTENDED RELEASE [Concomitant]
     Indication: HEART RATE INCREASED
     Route: 048
     Dates: start: 20090101
  5. LEVOXYL [Concomitant]
     Indication: HYPOTHYROIDISM
     Dosage: 150-175 UG DAILY
     Route: 048
  6. STELARA [Suspect]
     Indication: PSORIASIS
     Route: 058
     Dates: start: 20110801
  7. ACETAMINOPHEN AND HYDROCODONE BITARTRATE [Concomitant]
     Route: 048
  8. VITAMIN D [Concomitant]
     Indication: MEDICAL DIET
     Dosage: 1 CAPSULE WEEKLY
     Route: 048
     Dates: start: 20000101
  9. CYCLOBENZAPRINE [Concomitant]
     Indication: MUSCLE SPASMS
     Dosage: AS NEEDED
     Route: 048
  10. LISINOPRIL [Concomitant]
     Indication: HYPERTENSION
     Route: 048
  11. METFORMIN HCL [Concomitant]
     Indication: DIABETES MELLITUS
     Route: 048
  12. FERROUS SULFATE TAB [Concomitant]
     Indication: MEDICAL DIET
     Route: 048
     Dates: start: 20090101
  13. SERTRALINE HYDROCHLORIDE [Concomitant]
     Indication: DEPRESSION
     Route: 048
     Dates: start: 20060101
  14. EXCEDRIN (MIGRAINE) [Concomitant]
     Dosage: AS NEEDED
     Route: 048
  15. NAPROSYN [Concomitant]
     Indication: PAIN
     Route: 048
  16. HYOSCYAMINE SULFATE [Concomitant]
     Indication: DIARRHOEA
     Route: 048
     Dates: start: 20100414
  17. CYANOCOBALAMIN [Concomitant]
     Indication: MEDICAL DIET
     Route: 030
     Dates: start: 20100125

REACTIONS (4)
  - DIABETES MELLITUS [None]
  - BACK PAIN [None]
  - THYROID DISORDER [None]
  - DEPRESSION [None]
